FAERS Safety Report 5536917-4 (Version None)
Quarter: 2007Q4

REPORT INFORMATION
  Report Type: 
  Country: None (occurrence: None)
  Receive Date: 20071207
  Receipt Date: 20071128
  Transmission Date: 20080405
  Serious: Yes (Other)
  Sender: FDA-Public Use
  Company Number: PHBS2006CH07002

PATIENT
  Age: 20 Year
  Sex: Female

DRUGS (2)
  1. LAMICTAL [Suspect]
     Indication: EPILEPSY
     Dosage: 200 MG/D
     Route: 065
     Dates: start: 19920101
  2. TRILEPTAL [Suspect]
     Indication: EPILEPSY
     Dosage: 1500 MG/D
     Route: 065
     Dates: start: 19920101

REACTIONS (2)
  - ABORTION INDUCED [None]
  - DRUG EXPOSURE DURING PREGNANCY [None]
